FAERS Safety Report 21715236 (Version 1)
Quarter: 2022Q4

REPORT INFORMATION
  Report Type: Spontaneous
  Country: US (occurrence: None)
  Receive Date: 20221210
  Receipt Date: 20221210
  Transmission Date: 20230112
  Serious: Yes (Other)
  Sender: FDA-Public Use
  Company Number: None

PATIENT
  Age: 81 Year
  Sex: Female
  Weight: 72.9 kg

DRUGS (1)
  1. ESTRADIOL\TESTOSTERONE [Suspect]
     Active Substance: ESTRADIOL\TESTOSTERONE
     Dates: start: 20220701, end: 20221001

REACTIONS (2)
  - Vaginal haemorrhage [None]
  - Endometrial disorder [None]

NARRATIVE: CASE EVENT DATE: 20221016
